FAERS Safety Report 10219638 (Version 3)
Quarter: 2014Q2

REPORT INFORMATION
  Report Type: Report from Study
  Country: US (occurrence: US)
  Receive Date: 20140605
  Receipt Date: 20140627
  Transmission Date: 20141212
  Serious: Yes (Hospitalization)
  Sender: FDA-Public Use
  Company Number: US-BRISTOL-MYERS SQUIBB COMPANY-20888814

PATIENT
  Age: 44 Year
  Sex: Male
  Weight: 82.5 kg

DRUGS (8)
  1. NULOJIX [Suspect]
     Indication: PROPHYLAXIS AGAINST TRANSPLANT REJECTION
     Dosage: LAST DOSE:28MAY14
     Route: 042
     Dates: start: 20140522
  2. CELLCEPT [Suspect]
     Dosage: TABS
  3. NORCO [Concomitant]
     Dosage: 1DF: 5-325 MG TABS
  4. PEPCID [Concomitant]
     Dosage: 1DF: 5-325 MG,TABS
  5. SENOKOT [Concomitant]
     Dosage: TABS
  6. BACTRIM [Concomitant]
     Dosage: 1DF: 400-80 MG TABS
  7. SEPTRA [Concomitant]
     Dosage: 1DF: 400-80 MG PER TABLET
  8. VALCYTE [Concomitant]
     Dosage: TABS

REACTIONS (9)
  - Renal failure acute [Unknown]
  - Hypotension [Unknown]
  - Dehydration [Unknown]
  - Dysuria [Unknown]
  - Haematuria [Unknown]
  - Nausea [Unknown]
  - Decreased appetite [Unknown]
  - Abdominal distension [Unknown]
  - Dizziness [Unknown]
